FAERS Safety Report 6162734-0 (Version None)
Quarter: 2009Q2

REPORT INFORMATION
  Report Type: 
  Country: None (occurrence: None)
  Receive Date: 20090421
  Receipt Date: 20080415
  Transmission Date: 20091009
  Serious: No
  Sender: FDA-Public Use
  Company Number: US-ASTRAZENECA-2008UW07634

PATIENT

DRUGS (3)
  1. TOPROL-XL [Suspect]
     Route: 048
  2. COUMADIN [Suspect]
  3. AGGRENOX [Concomitant]

REACTIONS (1)
  - ILL-DEFINED DISORDER [None]
